FAERS Safety Report 16791492 (Version 1)
Quarter: 2019Q3

REPORT INFORMATION
  Report Type: Spontaneous
  Country: CN (occurrence: CN)
  Receive Date: 20190910
  Receipt Date: 20190910
  Transmission Date: 20191005
  Serious: Yes (Hospitalization)
  Sender: FDA-Public Use
  Company Number: CN-BAXTER-2019BAX017483

PATIENT
  Age: 29 Year
  Sex: Male
  Weight: 48 kg

DRUGS (15)
  1. VINCRISTINE SULFATE. [Suspect]
     Active Substance: VINCRISTINE SULFATE
     Indication: ANGIOCENTRIC LYMPHOMA
     Dosage: FIRST COURSE
     Route: 041
     Dates: start: 20190722, end: 20190722
  2. ENDOXAN [Suspect]
     Active Substance: CYCLOPHOSPHAMIDE
     Indication: ANGIOCENTRIC LYMPHOMA
     Dosage: FIRST COURSE, NS 100 ML + CYCLOPHOSPHAMIDE
     Route: 041
     Dates: start: 20190722, end: 20190722
  3. ENDOXAN [Suspect]
     Active Substance: CYCLOPHOSPHAMIDE
     Dosage: DOSE RE-INTRODUCED, NS + CYCLOPHOSPHAMIDE
     Route: 041
  4. 0.9% SODIUM CHLORIDE INJECTION [Suspect]
     Active Substance: SODIUM CHLORIDE
     Dosage: SECOND COURSE, NS + CYCLOPHOSPHAMIDE 1.1G
     Route: 041
     Dates: start: 20190812, end: 20190812
  5. 5% GLUCOSE  INJECTION [Suspect]
     Active Substance: DEXTROSE
     Indication: MEDICATION DILUTION
     Dosage: FIRST COURSE, 5% GS + PIRARUBICIN 80 MG
     Route: 041
     Dates: start: 20190722, end: 20190722
  6. PIRARUBICIN HYDROCHLORIDE [Suspect]
     Active Substance: PIRARUBICIN HYDROCHLORIDE
     Dosage: DOSE RE-INTRODUCED, 5% GS + PIRARUBICIN
     Route: 041
  7. 5% GLUCOSE  INJECTION [Suspect]
     Active Substance: DEXTROSE
     Dosage: DOSE RE-INTRODUCED, 5% GS + PIRARUBICIN
     Route: 041
  8. PIRARUBICIN HYDROCHLORIDE [Suspect]
     Active Substance: PIRARUBICIN HYDROCHLORIDE
     Indication: ANGIOCENTRIC LYMPHOMA
     Dosage: FIRST COURSE, 5% GS 100 ML + PIRARUBICIN
     Route: 041
     Dates: start: 20190722, end: 20190722
  9. PIRARUBICIN HYDROCHLORIDE [Suspect]
     Active Substance: PIRARUBICIN HYDROCHLORIDE
     Dosage: SECOND COURSE, 5% GS 100 ML + PIRARUBICIN
     Route: 041
     Dates: start: 20190812, end: 20190812
  10. ENDOXAN [Suspect]
     Active Substance: CYCLOPHOSPHAMIDE
     Dosage: SECOND COURSE, NS 100 ML + CYCLOPHOSPHAMIDE
     Route: 041
     Dates: start: 20190812, end: 20190812
  11. VINCRISTINE SULFATE. [Suspect]
     Active Substance: VINCRISTINE SULFATE
     Dosage: SECOND COURSE
     Route: 041
     Dates: start: 20190812, end: 20190812
  12. 0.9% SODIUM CHLORIDE INJECTION [Suspect]
     Active Substance: SODIUM CHLORIDE
     Indication: MEDICATION DILUTION
     Dosage: FIRST COURSE, NS + CYCLOPHOSPHAMIDE 1.1G
     Route: 041
     Dates: start: 20190722, end: 20190722
  13. 0.9% SODIUM CHLORIDE INJECTION [Suspect]
     Active Substance: SODIUM CHLORIDE
     Dosage: DOSE RE-INTRODUCED, NS + CYCLOPHOSPHAMIDE
     Route: 041
  14. 5% GLUCOSE  INJECTION [Suspect]
     Active Substance: DEXTROSE
     Dosage: SECOND COURSE, 5% GS + PIRARUBICIN 80 MG
     Route: 041
     Dates: start: 20190812, end: 20190812
  15. VINCRISTINE SULFATE. [Suspect]
     Active Substance: VINCRISTINE SULFATE
     Dosage: DOSE RE-INTRODUCED
     Route: 041

REACTIONS (3)
  - Pyrexia [Recovering/Resolving]
  - Bone marrow failure [Recovering/Resolving]
  - Oropharyngeal pain [Unknown]

NARRATIVE: CASE EVENT DATE: 20190819
